FAERS Safety Report 10660485 (Version 1)
Quarter: 2014Q4

REPORT INFORMATION
  Report Type: Spontaneous
  Country: US (occurrence: US)
  Receive Date: 20141217
  Receipt Date: 20141217
  Transmission Date: 20150529
  Serious: No
  Sender: FDA-Public Use
  Company Number: US-PURDUE-USA-2014-0112624

PATIENT
  Sex: Male

DRUGS (2)
  1. OXYCODONE HCL CR TABLETS (SIMILAR TO NDA 22-272) [Suspect]
     Active Substance: OXYCODONE HYDROCHLORIDE
     Indication: ROAD TRAFFIC ACCIDENT
     Dosage: 10 MG, Q8H
     Route: 048
     Dates: start: 20061006
  2. DILAUDID [Suspect]
     Active Substance: HYDROMORPHONE HYDROCHLORIDE
     Indication: ROAD TRAFFIC ACCIDENT
     Dosage: 4 MG, PRN
     Dates: start: 20061006

REACTIONS (4)
  - Antisocial personality disorder [Unknown]
  - Pain [Unknown]
  - Depression [Unknown]
  - Agitation [Unknown]
